FAERS Safety Report 6270427-4 (Version None)
Quarter: 2009Q3

REPORT INFORMATION
  Report Type: 
  Country: None (occurrence: None)
  Receive Date: 20090716
  Receipt Date: 20090702
  Transmission Date: 20100115
  Serious: Yes (Disabling, Other)
  Sender: FDA-Public Use
  Company Number: PHHY2009PT16102

PATIENT
  Age: 19 Year
  Sex: Male

DRUGS (2)
  1. LEPONEX [Suspect]
     Indication: PSYCHOTIC DISORDER
     Dosage: 500 MG DAILY
     Dates: start: 20050101
  2. FLUOXETINE HCL [Concomitant]
     Dosage: 20 MG DAILY
     Route: 048
     Dates: start: 20080101

REACTIONS (6)
  - ARTHRALGIA [None]
  - JUVENILE ARTHRITIS [None]
  - PYREXIA [None]
  - RASH [None]
  - SKIN LESION [None]
  - STREPTOCOCCAL INFECTION [None]
